FAERS Safety Report 8890822 (Version 1)
Quarter: 2012Q4

REPORT INFORMATION
  Report Type: Report from Study
  Country: US (occurrence: US)
  Receive Date: 20121107
  Receipt Date: 20121107
  Transmission Date: 20130627
  Serious: Yes (Hospitalization)
  Sender: FDA-Public Use
  Company Number: US-ROCHE-1153173

PATIENT
  Age: 65 Year
  Sex: Female
  Weight: 85.81 kg

DRUGS (5)
  1. CAPECITABINE [Suspect]
     Indication: BREAST CANCER METASTATIC
     Route: 048
     Dates: start: 20121014, end: 20121018
  2. DOCETAXEL [Concomitant]
     Indication: BREAST CANCER METASTATIC
     Route: 042
     Dates: start: 2012
  3. POTASSIUM [Concomitant]
     Indication: HYPOKALAEMIA
     Route: 042
     Dates: start: 201210
  4. DILAUDID [Concomitant]
     Indication: PAIN
     Route: 065
     Dates: start: 201210
  5. ARIMIDEX [Concomitant]
     Indication: BREAST CANCER
     Route: 048
     Dates: start: 2012

REACTIONS (11)
  - Shock [Recovered/Resolved]
  - Neutropenia [Not Recovered/Not Resolved]
  - Diarrhoea [Not Recovered/Not Resolved]
  - Bone marrow failure [Not Recovered/Not Resolved]
  - Burning sensation [Not Recovered/Not Resolved]
  - Skin exfoliation [Not Recovered/Not Resolved]
  - Blister [Unknown]
  - Rash [Unknown]
  - Skin ulcer [Unknown]
  - Vomiting [Unknown]
  - Pyrexia [Unknown]
